FAERS Safety Report 6571123-6 (Version None)
Quarter: 2010Q1

REPORT INFORMATION
  Report Type: 
  Country: None (occurrence: None)
  Receive Date: 20100204
  Receipt Date: 20100127
  Transmission Date: 20100710
  Serious: Yes (Other)
  Sender: FDA-Public Use
  Company Number: US-ELI_LILLY_AND_COMPANY-US201001005777

PATIENT
  Sex: Female

DRUGS (5)
  1. HUMULIN N [Suspect]
     Indication: DIABETES MELLITUS
     Dosage: 24 U, EACH MORNING
  2. HUMULIN N [Suspect]
     Dosage: 18 U, EACH EVENING
  3. HUMULIN N [Suspect]
     Dosage: 24 U, EACH MORNING
     Dates: start: 20100122
  4. HUMULIN N [Suspect]
     Dosage: 18 U, EACH EVENING
     Dates: start: 20100122
  5. GLYPRIDE [Concomitant]
     Dosage: 5 MG, 2/D
     Dates: start: 20020101

REACTIONS (4)
  - BLINDNESS [None]
  - BLOOD GLUCOSE INCREASED [None]
  - INCORRECT DOSE ADMINISTERED [None]
  - WRONG TECHNIQUE IN DRUG USAGE PROCESS [None]
